FAERS Safety Report 8178566-8 (Version None)
Quarter: 2012Q1

REPORT INFORMATION
  Report Type: 
  Country: None (occurrence: None)
  Receive Date: 20120301
  Receipt Date: 20120220
  Transmission Date: 20120608
  Serious: Yes (Hospitalization, Other)
  Sender: FDA-Public Use
  Company Number: US-ELI_LILLY_AND_COMPANY-US201006004447

PATIENT
  Sex: Female

DRUGS (15)
  1. FERROUS SULFATE TAB [Concomitant]
  2. PEGANONE [Concomitant]
     Dosage: 500 MG, 3/D
  3. VITAMIN B COMPLEX CAP [Concomitant]
  4. FORTEO [Suspect]
     Indication: OSTEOPOROSIS
     Dosage: 20 UG, DAILY (1/D)
     Route: 065
  5. CLORAZEPATE DIPOTASSIUM [Concomitant]
     Dosage: UNK, DAILY (1/D)
  6. TRIAMTERENE [Concomitant]
     Dosage: UNK, UNKNOWN
  7. FORTEO [Suspect]
     Dosage: 20 UG, DAILY (1/D)
     Route: 065
  8. KLOR-CON [Concomitant]
  9. CALCIUM [Concomitant]
  10. KEPPRA [Concomitant]
     Dosage: 3 D/F, 2/D
  11. LYRICA [Concomitant]
     Dosage: UNK, 3/D
  12. PHENOBARBITAL TAB [Concomitant]
  13. ASCORBIC ACID [Concomitant]
  14. VITAMIN D [Concomitant]
  15. MULTI-VITAMIN [Concomitant]

REACTIONS (10)
  - UTERINE CANCER [None]
  - FEELING ABNORMAL [None]
  - GAIT DISTURBANCE [None]
  - BALANCE DISORDER [None]
  - SURGERY [None]
  - METASTASES TO LYMPH NODES [None]
  - SOMNOLENCE [None]
  - ARTHROPATHY [None]
  - FATIGUE [None]
  - HYSTERECTOMY [None]
